FAERS Safety Report 5634933-5 (Version None)
Quarter: 2008Q1

REPORT INFORMATION
  Report Type: 
  Country: None (occurrence: None)
  Receive Date: 20080221
  Receipt Date: 20080221
  Transmission Date: 20080703
  Serious: Yes (Hospitalization)
  Sender: FDA-Public Use
  Company Number: None

PATIENT
  Age: 57 Year
  Sex: Female
  Weight: 59.4212 kg

DRUGS (1)
  1. LAMICTAL [Suspect]
     Indication: MOOD SWINGS
     Dosage: 12.5MG TO 25MG  QD TO BID  PO
     Route: 048
     Dates: start: 20080102, end: 20080125

REACTIONS (1)
  - HEPATITIS ACUTE [None]
